FAERS Safety Report 15765776 (Version 1)
Quarter: 2018Q4

REPORT INFORMATION
  Report Type: Spontaneous
  Country: US (occurrence: US)
  Receive Date: 20181218
  Receipt Date: 20181218
  Transmission Date: 20190205
  Serious: No
  Sender: FDA-Public Use
  Company Number: None

PATIENT

DRUGS (2)
  1. AMLODIPINE [Suspect]
     Active Substance: AMLODIPINE BESYLATE
     Dosage: ?          OTHER DOSE:SUSPENSION;?
  2. CARVEDILOL CARVEDILOL [Suspect]
     Active Substance: CARVEDILOL

REACTIONS (2)
  - Product dispensing error [None]
  - Intercepted product selection error [None]

NARRATIVE: CASE EVENT DATE: 2018
